FAERS Safety Report 16622438 (Version 1)
Quarter: 2019Q3

REPORT INFORMATION
  Report Type: Spontaneous
  Country: US (occurrence: US)
  Receive Date: 20190724
  Receipt Date: 20190724
  Transmission Date: 20191004
  Serious: Yes (Other)
  Sender: FDA-Public Use
  Company Number: US-BEH-2019104624

PATIENT
  Age: 64 Year
  Sex: Male

DRUGS (7)
  1. HIZENTRA [Suspect]
     Active Substance: HUMAN IMMUNOGLOBULIN G
     Indication: SELECTIVE IGA IMMUNODEFICIENCY
     Dosage: 15 GRAM, QW
     Route: 058
     Dates: start: 20180209
  2. LEVOTHYROXIN [Concomitant]
     Active Substance: LEVOTHYROXINE
  3. HIZENTRA [Suspect]
     Active Substance: HUMAN IMMUNOGLOBULIN G
     Dosage: UNK
     Route: 058
  4. HYDROCORT [HYDROCORTISONE ACETATE] [Concomitant]
  5. HIZENTRA [Suspect]
     Active Substance: HUMAN IMMUNOGLOBULIN G
     Dosage: UNK
     Route: 058
  6. HIZENTRA [Suspect]
     Active Substance: HUMAN IMMUNOGLOBULIN G
     Dosage: UNK
     Route: 058
  7. TESTOSTERONE. [Concomitant]
     Active Substance: TESTOSTERONE

REACTIONS (1)
  - Drug ineffective [Not Recovered/Not Resolved]
